FAERS Safety Report 26010751 (Version 1)
Quarter: 2025Q4

REPORT INFORMATION
  Report Type: Spontaneous
  Country: CN (occurrence: CN)
  Receive Date: 20251107
  Receipt Date: 20251107
  Transmission Date: 20260117
  Serious: Yes (Other)
  Sender: RANBAXY
  Company Number: CN-SUN PHARMACEUTICAL INDUSTRIES LTD-2025R1-534702

PATIENT
  Age: 27 Year
  Sex: Female

DRUGS (19)
  1. CEFTRIAXONE [Suspect]
     Active Substance: CEFTRIAXONE
     Indication: Antibiotic therapy
     Dosage: 2 GRAM, QD
     Route: 042
  2. MANNITOL [Suspect]
     Active Substance: MANNITOL
     Indication: Polyuria
     Dosage: 125 ML, Q8H
     Route: 042
  3. MANNITOL [Suspect]
     Active Substance: MANNITOL
     Indication: CSF pressure
     Dosage: 125 ML INTRAVENOUSLY EVERY 6 H)
  4. PIPERACILLIN SODIUM\TAZOBACTAM SODIUM [Suspect]
     Active Substance: PIPERACILLIN SODIUM\TAZOBACTAM SODIUM
     Indication: Antibiotic therapy
     Dosage: 4.5 GRAM, IV Q8H
     Route: 042
  5. DEXMEDETOMIDINE [Suspect]
     Active Substance: DEXMEDETOMIDINE
     Indication: Seizure
     Dosage: UNK
     Route: 065
  6. LACOSAMIDE [Suspect]
     Active Substance: LACOSAMIDE
     Indication: Epilepsy
     Dosage: 100 MILLIGRAM, BID
     Route: 042
  7. LACOSAMIDE [Suspect]
     Active Substance: LACOSAMIDE
     Indication: Seizure
  8. OXYTOCIN [Suspect]
     Active Substance: OXYTOCIN
     Indication: Uterine contractions during pregnancy
     Dosage: UNK
     Route: 065
  9. CEFOPERAZONE [Suspect]
     Active Substance: CEFOPERAZONE
     Indication: Antibiotic therapy
     Dosage: 4 GRAM, Q12H
     Route: 042
  10. TIGECYCLINE [Suspect]
     Active Substance: TIGECYCLINE
     Indication: Antibiotic therapy
     Dosage: 50 MILLIGRAM, BID
     Route: 042
  11. TIGECYCLINE [Suspect]
     Active Substance: TIGECYCLINE
     Dosage: 100 MILLIGRAM, BID
     Route: 042
  12. EBASTINE [Suspect]
     Active Substance: EBASTINE
     Indication: Rash
     Dosage: UNK
     Route: 065
  13. MEROPENEM [Suspect]
     Active Substance: MEROPENEM
     Indication: Antibiotic therapy
     Dosage: 1000 MG ,  Q8H
     Route: 042
  14. CETIRIZINE [Suspect]
     Active Substance: CETIRIZINE HYDROCHLORIDE
     Indication: Rash
     Dosage: UNK
     Route: 065
  15. ACYCLOVIR [Suspect]
     Active Substance: ACYCLOVIR
     Indication: Antiviral treatment
     Dosage: 500 MILLIGRAM, Q8H
     Route: 042
  16. SUCRALFATE [Suspect]
     Active Substance: SUCRALFATE
     Indication: Gastrointestinal disorder
     Dosage: UNK
     Route: 048
  17. COLISTIN SULFATE [Suspect]
     Active Substance: COLISTIN SULFATE
     Indication: Antibiotic therapy
     Dosage: 750000U ,Q12H
     Route: 042
  18. ILAPRAZOLE [Concomitant]
     Active Substance: ILAPRAZOLE
     Indication: Gastrointestinal disorder
     Dosage: UNK
     Route: 065
  19. 3-hydroxytyramine HCL [Concomitant]
     Indication: Haemodynamic instability
     Dosage: LOW DOSE INFUSION
     Route: 065

REACTIONS (3)
  - Exposure during pregnancy [Unknown]
  - Neutropenia [Recovering/Resolving]
  - Hypertransaminasaemia [Recovering/Resolving]
